FAERS Safety Report 8482354-2 (Version None)
Quarter: 2012Q3

REPORT INFORMATION
  Report Type: 
  Country: None (occurrence: None)
  Receive Date: 20120702
  Receipt Date: 20120620
  Transmission Date: 20120928
  Serious: Yes (Hospitalization)
  Sender: FDA-Public Use
  Company Number: AT-JNJFOC-20120612256

PATIENT
  Sex: Male

DRUGS (10)
  1. CO-DILATREND [Concomitant]
     Indication: HYPERTENSION
     Route: 048
     Dates: start: 20090409
  2. DURAGESIC-100 [Concomitant]
     Indication: BACK PAIN
     Route: 062
     Dates: start: 20120123
  3. ABIRATERONE ACETATE [Suspect]
     Indication: PROSTATE CANCER METASTATIC
     Route: 048
     Dates: start: 20081017, end: 20101110
  4. PREDNISOLONE [Suspect]
     Indication: PROSTATE CANCER METASTATIC
     Route: 048
     Dates: start: 20101111
  5. ZOMETA [Concomitant]
     Indication: METASTASES TO BONE
     Route: 042
     Dates: start: 20070101
  6. GLUCOPHAGE [Concomitant]
     Indication: TYPE 2 DIABETES MELLITUS
     Route: 048
     Dates: start: 20081003
  7. ABIRATERONE ACETATE [Suspect]
     Route: 048
     Dates: start: 20101111, end: 20120613
  8. TEMAZEPAM [Concomitant]
     Indication: MUSCULOSKELETAL STIFFNESS
     Route: 048
     Dates: start: 20081114
  9. FENOFIBRATE [Concomitant]
     Indication: HYPERLIPIDAEMIA
     Route: 048
     Dates: start: 20060101
  10. SITAGLIPTIN PHOSPHATE [Concomitant]
     Indication: DIABETES MELLITUS
     Route: 048
     Dates: start: 20091003

REACTIONS (2)
  - DEHYDRATION [None]
  - VASCULITIS [None]
